FAERS Safety Report 5233674-6 (Version None)
Quarter: 2007Q1

REPORT INFORMATION
  Report Type: 
  Country: None (occurrence: None)
  Receive Date: 20070208
  Receipt Date: 20070202
  Transmission Date: 20070707
  Serious: Yes (Death, Other)
  Sender: FDA-Public Use
  Company Number: PHBS2007JP01556

PATIENT
  Age: 15 Year
  Sex: Male
  Weight: 33 kg

DRUGS (12)
  1. CYCLOSPORINE [Suspect]
     Indication: GRAFT VERSUS HOST DISEASE
     Dosage: 25 MG/D
     Route: 065
     Dates: end: 20040716
  2. CYCLOPHOSPHAMIDE [Concomitant]
     Dates: end: 20040716
  3. CYTARABINE [Concomitant]
  4. FLUDARABINE [Concomitant]
  5. MELPHALAN [Concomitant]
  6. TACROLIMUS [Concomitant]
     Dates: end: 20040716
  7. METHOTREXATE [Concomitant]
  8. PREDNISOLONE [Concomitant]
     Indication: GRAFT VERSUS HOST DISEASE
     Dosage: 5 MG/D
     Dates: end: 20040716
  9. PENTAZOCINE LACTATE [Concomitant]
  10. ATROPINE SULFATE [Concomitant]
  11. NICOMORPHINE HYDROCHORIDE [Concomitant]
     Dates: end: 20040715
  12. GABEXATE MESILATE [Concomitant]

REACTIONS (24)
  - ABDOMINAL PAIN UPPER [None]
  - ANXIETY [None]
  - BLISTER [None]
  - C-REACTIVE PROTEIN INCREASED [None]
  - CHOLECYSTITIS CHRONIC [None]
  - DEPRESSED LEVEL OF CONSCIOUSNESS [None]
  - DISSEMINATED INTRAVASCULAR COAGULATION [None]
  - GASTRITIS [None]
  - HAEMORRHAGE [None]
  - HEPATIC FUNCTION ABNORMAL [None]
  - HEPATIC NECROSIS [None]
  - HERPES ZOSTER DISSEMINATED [None]
  - LUNG DISORDER [None]
  - MENTAL STATUS CHANGES [None]
  - MULTI-ORGAN FAILURE [None]
  - PALLOR [None]
  - PLATELET COUNT DECREASED [None]
  - RASH VESICULAR [None]
  - RESTLESSNESS [None]
  - THROMBOTIC MICROANGIOPATHY [None]
  - TONIC CONVULSION [None]
  - TRANSAMINASES INCREASED [None]
  - VASCULITIS [None]
  - VIRAL DNA TEST POSITIVE [None]
